FAERS Safety Report 8528997-9 (Version None)
Quarter: 2012Q3

REPORT INFORMATION
  Report Type: 
  Country: None (occurrence: None)
  Receive Date: 20120723
  Receipt Date: 20120717
  Transmission Date: 20120928
  Serious: Yes (Hospitalization, Other)
  Sender: FDA-Public Use
  Company Number: US-009507513-1207USA006087

PATIENT

DRUGS (6)
  1. ASPIRIN [Concomitant]
  2. RAMIPRIL [Concomitant]
  3. JANUMET [Suspect]
     Indication: TYPE 2 DIABETES MELLITUS
     Dosage: 500MG/50MG, BID
     Route: 048
  4. CALCIUM (UNSPECIFIED) [Concomitant]
  5. VITAMIN D (UNSPECIFIED) [Concomitant]
  6. PROTONIX [Concomitant]

REACTIONS (1)
  - PANCREATITIS [None]
